FAERS Safety Report 18505542 (Version 1)
Quarter: 2020Q4

REPORT INFORMATION
  Report Type: Spontaneous
  Country: BA (occurrence: BA)
  Receive Date: 20201116
  Receipt Date: 20201116
  Transmission Date: 20210114
  Serious: Yes (Other)
  Sender: FDA-Public Use
  Company Number: BA-SA-2020SA317450

PATIENT

DRUGS (3)
  1. ZALTRAP [Suspect]
     Active Substance: ZIV-AFLIBERCEPT
     Dosage: UNK MG
  2. IRINOTECAN [Concomitant]
     Active Substance: IRINOTECAN
     Dosage: 290 MG
  3. ZALTRAP [Suspect]
     Active Substance: ZIV-AFLIBERCEPT
     Dosage: 240 MG, QOW

REACTIONS (1)
  - Hepatic failure [Unknown]
